FAERS Safety Report 8308172-3 (Version None)
Quarter: 2012Q2

REPORT INFORMATION
  Report Type: 
  Country: None (occurrence: None)
  Receive Date: 20120424
  Receipt Date: 20120417
  Transmission Date: 20120825
  Serious: Yes (Hospitalization, Other)
  Sender: FDA-Public Use
  Company Number: US-BAYER-2011-124167

PATIENT
  Age: 18 Year
  Sex: Female
  Weight: 50.34 kg

DRUGS (6)
  1. CLARITHROMYCIN [Concomitant]
     Dosage: 500 MG, BID
     Route: 048
  2. TYLENOL (CAPLET) [Concomitant]
     Dosage: 500 MG, PRN
     Route: 048
  3. YAZ [Suspect]
     Indication: PREMENSTRUAL SYNDROME
  4. ORTHO TRI-CYCLEN [Concomitant]
     Dosage: UNK
     Dates: start: 20100601
  5. YAZ [Suspect]
     Indication: ACNE
     Dosage: UNK
     Dates: start: 20091201, end: 20100401
  6. BIAXIN [Concomitant]
     Indication: SINUSITIS

REACTIONS (6)
  - DYSPEPSIA [None]
  - LIVER INJURY [None]
  - PAIN [None]
  - HEPATITIS VIRAL [None]
  - EMOTIONAL DISTRESS [None]
  - GALLBLADDER DISORDER [None]
